FAERS Safety Report 9975968 (Version 3)
Quarter: 2014Q1

REPORT INFORMATION
  Report Type: Report from Study
  Country: US (occurrence: US)
  Receive Date: 20140306
  Receipt Date: 20140313
  Transmission Date: 20141002
  Serious: Yes (Hospitalization)
  Sender: FDA-Public Use
  Company Number: US-ABBVIE-13P-163-1137088-00

PATIENT
  Sex: Female

DRUGS (1)
  1. CREON [Suspect]
     Indication: PANCREATIC INSUFFICIENCY
     Dosage: UNKNOWN

REACTIONS (9)
  - Pancreatitis [Unknown]
  - Food intolerance [Unknown]
  - Food craving [Unknown]
  - Pancreatitis [Unknown]
  - Pain [Unknown]
  - Economic problem [Unknown]
  - Emotional distress [Unknown]
  - Crying [Unknown]
  - Frustration [Unknown]
